FAERS Safety Report 9293688 (Version 1)
Quarter: 2013Q2

REPORT INFORMATION
  Report Type: Report from Study
  Country: IN (occurrence: IN)
  Receive Date: 20130516
  Receipt Date: 20130516
  Transmission Date: 20140414
  Serious: Yes (Death, Hospitalization)
  Sender: FDA-Public Use
  Company Number: IN-SANOFI-AVENTIS-2013SA049059

PATIENT
  Age: 75 Year
  Sex: Male

DRUGS (1)
  1. DOCETAXEL [Suspect]
     Indication: LIP AND/OR ORAL CAVITY CANCER
     Route: 042
     Dates: start: 20130227, end: 20130426

REACTIONS (1)
  - Cardiac failure [Fatal]
